FAERS Safety Report 20065548 (Version 9)
Quarter: 2022Q4

REPORT INFORMATION
  Report Type: Report from Study
  Country: CO (occurrence: CO)
  Receive Date: 20211113
  Receipt Date: 20221201
  Transmission Date: 20230113
  Serious: Yes (Life-Threatening, Hospitalization, Other)
  Sender: FDA-Public Use
  Company Number: CO-NOVARTISPH-NVSC2021CO184409

PATIENT
  Age: 27 Year
  Sex: Female
  Weight: 62 kg

DRUGS (2)
  1. ELTROMBOPAG OLAMINE [Suspect]
     Active Substance: ELTROMBOPAG OLAMINE
     Indication: Immune thrombocytopenia
     Dosage: 50 MG, QD
     Route: 048
  2. ELTROMBOPAG OLAMINE [Suspect]
     Active Substance: ELTROMBOPAG OLAMINE
     Dosage: UNK
     Route: 048

REACTIONS (18)
  - Platelet count decreased [Unknown]
  - Platelet count increased [Unknown]
  - Disease recurrence [Unknown]
  - Headache [Unknown]
  - Gingival bleeding [Recovered/Resolved]
  - Petechiae [Recovered/Resolved]
  - Eye disorder [Unknown]
  - Vomiting [Unknown]
  - Haemorrhage [Unknown]
  - Contusion [Unknown]
  - Mouth haemorrhage [Unknown]
  - Illness [Unknown]
  - Paraesthesia [Unknown]
  - Ligament sprain [Unknown]
  - Vulvovaginal pain [Unknown]
  - Vulvovaginal burning sensation [Unknown]
  - Abdominal pain lower [Unknown]
  - Product dose omission issue [Unknown]

NARRATIVE: CASE EVENT DATE: 20211001
